FAERS Safety Report 16393863 (Version 2)
Quarter: 2019Q2

REPORT INFORMATION
  Report Type: Spontaneous
  Country: US (occurrence: US)
  Receive Date: 20190605
  Receipt Date: 20190619
  Transmission Date: 20190711
  Serious: No
  Sender: FDA-Public Use
  Company Number: US-ALLERGAN-1828487US

PATIENT
  Sex: Female

DRUGS (2)
  1. TAYTULLA [Suspect]
     Active Substance: ETHINYL ESTRADIOL\NORETHINDRONE ACETATE
     Indication: DYSMENORRHOEA
  2. TAYTULLA [Suspect]
     Active Substance: ETHINYL ESTRADIOL\NORETHINDRONE ACETATE
     Indication: MENORRHAGIA
     Dosage: 1 DF, UNK
     Route: 048
     Dates: start: 2017

REACTIONS (3)
  - Off label use [Unknown]
  - Recalled product administered [Unknown]
  - Recalled product [Unknown]
